FAERS Safety Report 21787170 (Version 1)
Quarter: 2022Q4

REPORT INFORMATION
  Report Type: Spontaneous
  Country: US (occurrence: US)
  Receive Date: 20221228
  Receipt Date: 20221228
  Transmission Date: 20230113
  Serious: Yes (Other)
  Sender: FDA-Public Use
  Company Number: US-CADILA HEALTHCARE LIMITED-US-ZYDUS-086262

PATIENT

DRUGS (2)
  1. BUPROPION [Suspect]
     Active Substance: BUPROPION
     Indication: Euphoric mood
     Dosage: 150 MILLIGRAM
     Route: 065
  2. BUPROPION [Suspect]
     Active Substance: BUPROPION
     Dosage: 300 MILLIGRAM
     Route: 065

REACTIONS (4)
  - Hyponatraemia [Recovered/Resolved]
  - Psychotic disorder [Unknown]
  - Suicide attempt [Unknown]
  - Drug abuse [Unknown]
